FAERS Safety Report 9845337 (Version 1)
Quarter: 2014Q1

REPORT INFORMATION
  Report Type: Spontaneous
  Country: US (occurrence: None)
  Receive Date: 20140122
  Receipt Date: 20140122
  Transmission Date: 20141002
  Serious: Yes (Death)
  Sender: FDA-Public Use
  Company Number: 2136918

PATIENT
  Age: 32 Year
  Sex: Male

DRUGS (5)
  1. CODEINE [Suspect]
  2. COCAINE [Suspect]
  3. HEROIN [Suspect]
  4. LEVAMISOLE [Suspect]
  5. DEXTROMETHORPHAN [Suspect]

REACTIONS (4)
  - Respiratory arrest [None]
  - Cardiac arrest [None]
  - Drug abuse [None]
  - Poisoning [None]
